FAERS Safety Report 23774611 (Version 1)
Quarter: 2024Q2

REPORT INFORMATION
  Report Type: Spontaneous
  Country: MX (occurrence: MX)
  Receive Date: 20240423
  Receipt Date: 20240423
  Transmission Date: 20240716
  Serious: Yes (Other)
  Sender: FDA-Public Use
  Company Number: MX-BAYER-2024A060241

PATIENT
  Age: 43 Year
  Sex: Male

DRUGS (2)
  1. LAROTRECTINIB [Suspect]
     Active Substance: LAROTRECTINIB
     Indication: Astrocytoma
     Dosage: 100 MG, BID
     Dates: start: 20220721, end: 20230618
  2. LAROTRECTINIB [Suspect]
     Active Substance: LAROTRECTINIB
     Indication: Astrocytoma
     Dosage: 100 MG, BID
     Dates: end: 20240418

REACTIONS (1)
  - Astrocytoma [None]
